FAERS Safety Report 9521934 (Version 1)
Quarter: 2013Q1

REPORT INFORMATION
  Report Type: Spontaneous
  Country: US (occurrence: None)
  Receive Date: 20130305
  Receipt Date: 20130305
  Transmission Date: 20140127
  Serious: Yes (Other)
  Sender: FDA-Public Use
  Company Number: 163-21880-12072663

PATIENT
  Age: 54 Year
  Sex: Female
  Weight: 68.95 kg

DRUGS (5)
  1. REVLIMID [Suspect]
     Indication: MYELODYSPLASTIC SYNDROME
     Route: 048
     Dates: start: 200811, end: 2010
  2. DIFLUCAN (FLUCONAZOLE) (UNKNOWN) [Concomitant]
  3. EFFEXOR (VENLAFAXINE HYDROCHLORIDE) (UNKNOWN) [Concomitant]
  4. ALBUTEROL (SALBUTAMOL) (UNKNOWN) [Concomitant]
  5. B 12 (CYANOCOBALAMIN) (UNKNOWN) [Concomitant]

REACTIONS (4)
  - Neutropenia [None]
  - White blood cell count decreased [None]
  - Haemoglobin decreased [None]
  - Productive cough [None]
